FAERS Safety Report 23489985 (Version 1)
Quarter: 2024Q1

REPORT INFORMATION
  Report Type: Spontaneous
  Country: US (occurrence: None)
  Receive Date: 20240206
  Receipt Date: 20240206
  Transmission Date: 20240410
  Serious: No
  Sender: FDA-Public Use
  Company Number: US-ROCHE-3477579

PATIENT
  Sex: Female

DRUGS (33)
  1. XOLAIR [Suspect]
     Active Substance: OMALIZUMAB
     Indication: Asthma
     Dosage: 150 MG/ML
     Route: 058
  2. XOLAIR [Suspect]
     Active Substance: OMALIZUMAB
  3. XOLAIR [Suspect]
     Active Substance: OMALIZUMAB
  4. CLARITHROMYCIN [Concomitant]
     Active Substance: CLARITHROMYCIN
  5. ETHAMBUTOL HYDROCHLORIDE [Concomitant]
     Active Substance: ETHAMBUTOL HYDROCHLORIDE
  6. RIFAMPIN [Concomitant]
     Active Substance: RIFAMPIN
  7. ALBUTEROL [Concomitant]
     Active Substance: ALBUTEROL
  8. BUTALBITAL [Concomitant]
     Active Substance: BUTALBITAL
  9. CLINDAMYCIN [Concomitant]
     Active Substance: CLINDAMYCIN
  10. DIAZEPAM [Concomitant]
     Active Substance: DIAZEPAM
  11. DIPHENOXYLATE [Concomitant]
     Active Substance: DIPHENOXYLATE
  12. DONEPEZIL [Concomitant]
     Active Substance: DONEPEZIL
  13. DOXYCYCLINE [Concomitant]
     Active Substance: DOXYCYCLINE
  14. ESOMEPRAZOLE [Concomitant]
     Active Substance: ESOMEPRAZOLE
  15. FLUCONAZOLE [Concomitant]
     Active Substance: FLUCONAZOLE
  16. FLUTICASONE [Concomitant]
     Active Substance: FLUTICASONE
  17. IPRATROPIUM [Concomitant]
     Active Substance: IPRATROPIUM
  18. LEVOFLOXACIN [Concomitant]
     Active Substance: LEVOFLOXACIN
  19. MELOXICAM [Concomitant]
     Active Substance: MELOXICAM
  20. METHYLPREDNISOLONE [Concomitant]
     Active Substance: METHYLPREDNISOLONE
  21. MINOCYCLINE [Concomitant]
     Active Substance: MINOCYCLINE HYDROCHLORIDE
  22. NITROGLYCERIN [Concomitant]
     Active Substance: NITROGLYCERIN
  23. NYSTATIN [Concomitant]
     Active Substance: NYSTATIN
  24. OMEPRAZOLE [Concomitant]
     Active Substance: OMEPRAZOLE
  25. PEG 3350 [Concomitant]
     Active Substance: POLYETHYLENE GLYCOL 3350
  26. PERCOCET [Concomitant]
     Active Substance: ACETAMINOPHEN\OXYCODONE HYDROCHLORIDE
  27. HIGH DENSITY POLYETHYLENE [Concomitant]
     Active Substance: HIGH DENSITY POLYETHYLENE
  28. PREDNISONE [Concomitant]
     Active Substance: PREDNISONE
  29. PREVALITE [Concomitant]
     Active Substance: CHOLESTYRAMINE
  30. SYMBICORT [Concomitant]
     Active Substance: BUDESONIDE\FORMOTEROL FUMARATE DIHYDRATE
  31. TRAZODONE [Concomitant]
     Active Substance: TRAZODONE HYDROCHLORIDE
  32. TYLENOL [Concomitant]
     Active Substance: ACETAMINOPHEN
  33. VENTOLIN [Concomitant]
     Active Substance: ALBUTEROL SULFATE

REACTIONS (2)
  - Abdominal pain [Unknown]
  - Urinary tract infection [Unknown]
